FAERS Safety Report 22400054 (Version 2)
Quarter: 2023Q2

REPORT INFORMATION
  Report Type: Report from Study
  Country: DE (occurrence: DE)
  Receive Date: 20230602
  Receipt Date: 20230630
  Transmission Date: 20230721
  Serious: Yes (Hospitalization)
  Sender: FDA-Public Use
  Company Number: DE-Merck Healthcare KGaA-9402931

PATIENT
  Age: 61 Year
  Sex: Male
  Weight: 70 kg

DRUGS (4)
  1. AVELUMAB [Suspect]
     Active Substance: AVELUMAB
     Indication: Transitional cell carcinoma
     Dates: start: 20230419
  2. AVELUMAB [Suspect]
     Active Substance: AVELUMAB
     Dates: start: 20230503
  3. ACETAMINOPHEN [Concomitant]
     Active Substance: ACETAMINOPHEN
     Indication: Prophylaxis
     Route: 042
     Dates: start: 20230419
  4. CLEMASTINE [Concomitant]
     Active Substance: CLEMASTINE
     Indication: Prophylaxis
     Route: 042
     Dates: start: 20230419

REACTIONS (6)
  - Type 3 diabetes mellitus [Not Recovered/Not Resolved]
  - Anaemia of malignant disease [Recovering/Resolving]
  - Normochromic normocytic anaemia [Recovering/Resolving]
  - Metabolic acidosis [Not Recovered/Not Resolved]
  - Hyponatraemia [Recovering/Resolving]
  - Urinary tract infection [Not Recovered/Not Resolved]

NARRATIVE: CASE EVENT DATE: 20230515
